FAERS Safety Report 17101742 (Version 4)
Quarter: 2021Q3

REPORT INFORMATION
  Report Type: Report from Study
  Country: FR (occurrence: FR)
  Receive Date: 20191202
  Receipt Date: 20210901
  Transmission Date: 20211014
  Serious: Yes (Other)
  Sender: FDA-Public Use
  Company Number: FR-SHIRE-FR201940977

PATIENT
  Age: 75 Year
  Sex: Male
  Weight: 58 kg

DRUGS (17)
  1. TEDUGLUTIDE [Suspect]
     Active Substance: TEDUGLUTIDE
     Indication: SHORT-BOWEL SYNDROME
     Dosage: 2.85 MILLIGRAM (0.05 MG KG TED DAILY DOSE, 7 TED DOSES PER WEEK)
     Route: 065
     Dates: start: 20160115, end: 20170706
  2. VANCOMYCINE [VANCOMYCIN] [Concomitant]
     Active Substance: VANCOMYCIN
     Indication: DERMATITIS INFECTED
     Dosage: 999.00 UNK
     Route: 042
     Dates: start: 201806, end: 201806
  3. TEDUGLUTIDE [Suspect]
     Active Substance: TEDUGLUTIDE
     Indication: SHORT-BOWEL SYNDROME
     Dosage: 2.85 MILLIGRAM (0.05 MG KG TED DAILY DOSE, 7 TED DOSES PER WEEK)
     Route: 065
     Dates: start: 20160115, end: 20170706
  4. TEDUGLUTIDE [Suspect]
     Active Substance: TEDUGLUTIDE
     Dosage: 2.85 MILLIGRAM (0.05 MG KG TED DAILY DOSE, 3 TED DOSES PER WEEK)
     Route: 065
     Dates: start: 20170706, end: 20170901
  5. VANCOMYCINE [VANCOMYCIN] [Concomitant]
     Active Substance: VANCOMYCIN
     Dosage: 30 MILLIGRAM/KILOGRAM, FOR 24 HRS
     Route: 042
     Dates: start: 201806, end: 201806
  6. LOPERAMIDE [Concomitant]
     Active Substance: LOPERAMIDE
     Indication: DIARRHOEA
  7. TEDUGLUTIDE [Suspect]
     Active Substance: TEDUGLUTIDE
     Dosage: 2.85 MILLIGRAM (0.05 MG KG TED DAILY DOSE, 3 TED DOSES PER WEEK)
     Route: 065
     Dates: start: 20170706, end: 20170901
  8. TEDUGLUTIDE [Suspect]
     Active Substance: TEDUGLUTIDE
     Indication: SHORT-BOWEL SYNDROME
     Dosage: 2.85 MILLIGRAM (0.05 MG KG TED DAILY DOSE, 7 TED DOSES PER WEEK)
     Route: 065
     Dates: start: 20160115, end: 20170706
  9. TEDUGLUTIDE [Suspect]
     Active Substance: TEDUGLUTIDE
     Dosage: 2.85 MILLIGRAM (0.05 MG KG TED DAILY DOSE, 3 TED DOSES PER WEEK)
     Route: 065
     Dates: start: 20170706, end: 20170901
  10. TAZOCILLINE [Concomitant]
     Active Substance: PIPERACILLIN SODIUM\TAZOBACTAM SODIUM
     Indication: DERMATITIS INFECTED
     Dosage: 999.00 UNK
     Route: 042
     Dates: start: 201806, end: 201806
  11. TEDUGLUTIDE [Suspect]
     Active Substance: TEDUGLUTIDE
     Indication: SHORT-BOWEL SYNDROME
     Dosage: 2.85 MILLIGRAM (0.05 MG KG TED DAILY DOSE, 7 TED DOSES PER WEEK)
     Route: 065
     Dates: start: 20160115, end: 20170706
  12. TEDUGLUTIDE [Suspect]
     Active Substance: TEDUGLUTIDE
     Dosage: 2.85 MILLIGRAM (0.05 MG KG TED DAILY DOSE, 3 TED DOSES PER WEEK)
     Route: 065
     Dates: start: 20170706, end: 20170901
  13. TEDUGLUTIDE [Suspect]
     Active Substance: TEDUGLUTIDE
     Dosage: 2.85 MILLIGRAM (0.05 MG KG TED DAILY DOSE, 7 TED DOSES PER WEEK)
     Route: 065
     Dates: start: 20180108
  14. ZYVOXID [Concomitant]
     Active Substance: LINEZOLID
     Indication: DERMATITIS
     Dosage: 999.00 UNK
     Route: 048
     Dates: start: 201806, end: 201806
  15. TEDUGLUTIDE [Suspect]
     Active Substance: TEDUGLUTIDE
     Dosage: 2.85 MILLIGRAM (0.05 MG KG TED DAILY DOSE, 7 TED DOSES PER WEEK)
     Route: 065
     Dates: start: 20180108
  16. TEDUGLUTIDE [Suspect]
     Active Substance: TEDUGLUTIDE
     Dosage: 2.85 MILLIGRAM (0.05 MG KG TED DAILY DOSE, 7 TED DOSES PER WEEK)
     Route: 065
     Dates: start: 20180108
  17. TEDUGLUTIDE [Suspect]
     Active Substance: TEDUGLUTIDE
     Dosage: 2.85 MILLIGRAM (0.05 MG KG TED DAILY DOSE, 7 TED DOSES PER WEEK)
     Route: 065
     Dates: start: 20180108

REACTIONS (1)
  - Pulmonary embolism [Recovered/Resolved]

NARRATIVE: CASE EVENT DATE: 20181209
